FAERS Safety Report 12741908 (Version 1)
Quarter: 2016Q3

REPORT INFORMATION
  Report Type: Spontaneous
  Country: NO (occurrence: NO)
  Receive Date: 20160914
  Receipt Date: 20160914
  Transmission Date: 20161109
  Serious: Yes (Death)
  Sender: FDA-Public Use
  Company Number: NO-CELGENEUS-NOR-2016087857

PATIENT
  Age: 68 Year
  Sex: Female

DRUGS (2)
  1. POMALIDOMIDE [Suspect]
     Active Substance: POMALIDOMIDE
     Indication: PLASMA CELL MYELOMA
     Route: 048
     Dates: start: 20150908
  2. DEXAMETHASONE ORAL [Concomitant]
     Active Substance: DEXAMETHASONE
     Indication: PLASMA CELL MYELOMA
     Route: 048
     Dates: start: 20150908

REACTIONS (3)
  - Respiratory failure [Fatal]
  - Acute respiratory distress syndrome [Fatal]
  - Leukopenia [Fatal]

NARRATIVE: CASE EVENT DATE: 20160201
